FAERS Safety Report 23285176 (Version 1)
Quarter: 2023Q4

REPORT INFORMATION
  Report Type: Spontaneous
  Country: ZA (occurrence: None)
  Receive Date: 20231211
  Receipt Date: 20231211
  Transmission Date: 20240110
  Serious: Yes (Hospitalization, Other)
  Sender: FDA-Public Use
  Company Number: 2023A277220

PATIENT
  Age: 61 Year
  Sex: Female

DRUGS (7)
  1. DAPAGLIFLOZIN [Suspect]
     Active Substance: DAPAGLIFLOZIN
     Indication: Diabetes mellitus
     Route: 048
  2. VORELLIX [Concomitant]
     Route: 048
  3. CLOVEXA [Concomitant]
     Indication: Blood test
     Route: 048
  4. POTASSIUM CHLORIDE [Concomitant]
     Active Substance: POTASSIUM CHLORIDE
     Indication: Mineral supplementation
     Route: 048
  5. OMEPRAZOLE [Concomitant]
     Active Substance: OMEPRAZOLE
     Indication: Ulcer
     Route: 048
  6. CARVEDILOL [Concomitant]
     Active Substance: CARVEDILOL
     Indication: Hypertension
     Route: 048
  7. DEFULIDE [Concomitant]
     Indication: Hypertension
     Route: 048

REACTIONS (3)
  - Dyspnoea [Unknown]
  - Pulmonary oedema [Unknown]
  - Myocardial infarction [Unknown]
